FAERS Safety Report 16074852 (Version 1)
Quarter: 2019Q1

REPORT INFORMATION
  Report Type: Report from Study
  Country: BR (occurrence: BR)
  Receive Date: 20190314
  Receipt Date: 20190314
  Transmission Date: 20190418
  Serious: Yes (Other)
  Sender: FDA-Public Use
  Company Number: PHHY2019BR057374

PATIENT
  Sex: Female
  Weight: 49 kg

DRUGS (1)
  1. ACLASTA [Suspect]
     Active Substance: ZOLEDRONIC ACID
     Indication: OSTEOPOROSIS
     Dosage: 1 DF, Q12MO
     Route: 042

REACTIONS (6)
  - Gingival disorder [Not Recovered/Not Resolved]
  - Pain [Unknown]
  - Tooth disorder [Not Recovered/Not Resolved]
  - Feeling abnormal [Unknown]
  - Osteonecrosis [Unknown]
  - Sinusitis [Unknown]
